FAERS Safety Report 6000365-3 (Version None)
Quarter: 2008Q4

REPORT INFORMATION
  Report Type: 
  Country: None (occurrence: None)
  Receive Date: 20081211
  Receipt Date: 20081211
  Transmission Date: 20090506
  Serious: Yes (Life-Threatening)
  Sender: FDA-Public Use
  Company Number: None

PATIENT
  Age: 19 Year
  Sex: Male
  Weight: 70 kg

DRUGS (1)
  1. ROACCUTANE 20 MG [Suspect]
     Indication: ACNE
     Dosage: PO
     Route: 048
     Dates: start: 20030402, end: 20030702

REACTIONS (1)
  - HYPOGLYCAEMIA [None]
